FAERS Safety Report 9193805 (Version 2)
Quarter: 2013Q2

REPORT INFORMATION
  Report Type: Spontaneous
  Country: FR (occurrence: FR)
  Receive Date: 20130327
  Receipt Date: 20130626
  Transmission Date: 20140414
  Serious: Yes (Hospitalization)
  Sender: FDA-Public Use
  Company Number: FR-ASTRAZENECA-2013SE19021

PATIENT
  Age: 29684 Day
  Sex: Female
  Weight: 79.4 kg

DRUGS (12)
  1. XEROQUEL [Suspect]
     Indication: SCHIZOPHRENIA
     Route: 048
     Dates: start: 20130115, end: 20130122
  2. XEROQUEL [Suspect]
     Indication: DEPRESSION
     Route: 048
     Dates: start: 20130115, end: 20130122
  3. DEPAMIDE [Concomitant]
     Indication: AFFECTIVE DISORDER
     Route: 048
  4. STILNOX [Concomitant]
     Indication: SLEEP DISORDER
     Route: 048
  5. ATARAX [Concomitant]
     Route: 048
  6. LEVOTHYROX [Concomitant]
     Route: 048
  7. INEXIUM [Concomitant]
  8. LASILIX [Concomitant]
  9. LANTUS [Concomitant]
     Dosage: 18 UI IN THE EVENING
  10. SPASFON [Concomitant]
  11. DEBRIDAT [Concomitant]
  12. PARACETAMOL [Concomitant]
     Route: 048

REACTIONS (1)
  - Intestinal obstruction [Unknown]
